FAERS Safety Report 12968341 (Version 2)
Quarter: 2017Q2

REPORT INFORMATION
  Report Type: Spontaneous
  Country: UA (occurrence: UA)
  Receive Date: 20161123
  Receipt Date: 20170426
  Transmission Date: 20170830
  Serious: Yes (Life-Threatening, Other)
  Sender: FDA-Public Use
  Company Number: UA-GLAXOSMITHKLINE-UA2016GSK169576

PATIENT
  Age: 32 Year
  Sex: Female

DRUGS (2)
  1. ZINNAT [Suspect]
     Active Substance: CEFUROXIME AXETIL
     Indication: BRONCHITIS
     Dosage: 500 MG, BID
     Route: 048
     Dates: start: 20161103, end: 20161104
  2. ASCORIL (BROMHEXINE + GUAIFENESIN + SALBUTAMOL) [Concomitant]
     Indication: BRONCHITIS
     Dosage: 1 UNK, QOD
     Route: 048
     Dates: start: 20161101, end: 20161104

REACTIONS (1)
  - Angioedema [Recovered/Resolved]

NARRATIVE: CASE EVENT DATE: 20161103
